FAERS Safety Report 14454674 (Version 1)
Quarter: 2018Q1

REPORT INFORMATION
  Report Type: Spontaneous
  Country: ES (occurrence: ES)
  Receive Date: 20180129
  Receipt Date: 20180129
  Transmission Date: 20180509
  Serious: Yes (Other)
  Sender: FDA-Public Use
  Company Number: ES-EISAI MEDICAL RESEARCH-EC-2018-035459

PATIENT
  Age: 49 Year
  Sex: Female
  Weight: 59 kg

DRUGS (4)
  1. PARIET [Suspect]
     Active Substance: RABEPRAZOLE SODIUM
     Indication: HELICOBACTER TEST POSITIVE
     Route: 048
     Dates: start: 20171217, end: 20171226
  2. TAVANIC [Suspect]
     Active Substance: LEVOFLOXACIN
     Indication: HELICOBACTER TEST POSITIVE
     Route: 048
     Dates: start: 20171217, end: 20171225
  3. CLAMOXYL (AMOXICILLIN) [Suspect]
     Active Substance: AMOXICILLIN
     Indication: HELICOBACTER TEST POSITIVE
     Route: 048
     Dates: start: 20171217, end: 20171226
  4. GASTRODENOL [Suspect]
     Active Substance: BISMUTH SUBCITRATE
     Indication: HELICOBACTER TEST POSITIVE
     Route: 048
     Dates: start: 20171217, end: 20171226

REACTIONS (2)
  - Myalgia [Not Recovered/Not Resolved]
  - Oral candidiasis [Recovering/Resolving]

NARRATIVE: CASE EVENT DATE: 20171220
